FAERS Safety Report 14379136 (Version 1)
Quarter: 2018Q1

REPORT INFORMATION
  Report Type: Spontaneous
  Country: FR (occurrence: FR)
  Receive Date: 20180112
  Receipt Date: 20180112
  Transmission Date: 20180509
  Serious: Yes (Other)
  Sender: FDA-Public Use
  Company Number: FR-CIPLA LTD.-2018FR00072

PATIENT

DRUGS (1)
  1. FINASTERIDE. [Suspect]
     Active Substance: FINASTERIDE
     Indication: ALOPECIA
     Dosage: 1 DF, DAILY
     Route: 048
     Dates: start: 20000701, end: 20171111

REACTIONS (4)
  - Depression [Unknown]
  - Libido decreased [Unknown]
  - Patient isolation [Unknown]
  - Suicidal ideation [Unknown]
